FAERS Safety Report 9702583 (Version 3)
Quarter: 2013Q4

REPORT INFORMATION
  Report Type: Spontaneous
  Country: US (occurrence: US)
  Receive Date: 20131121
  Receipt Date: 20131206
  Transmission Date: 20140711
  Serious: Yes (Hospitalization, Other)
  Sender: FDA-Public Use
  Company Number: US-CUBIST PHARMACEUTICAL, INC.-2013CBST001184

PATIENT
  Sex: 0

DRUGS (6)
  1. CUBICIN [Suspect]
     Indication: ENTEROCOCCAL SEPSIS
     Dosage: 360 MG, QD
     Route: 042
     Dates: start: 20130927, end: 20131003
  2. CUBICIN [Suspect]
     Indication: OFF LABEL USE
     Dosage: 500 MG, UNK
     Route: 042
     Dates: start: 20131003, end: 20131028
  3. ZOSYN [Concomitant]
     Indication: ENTEROCOCCAL SEPSIS
     Dosage: UNK UNK, UNK
     Route: 065
  4. MICROFUNGIN [Concomitant]
     Indication: PRODUCT USED FOR UNKNOWN INDICATION
     Dosage: 100 MG, UNK
     Route: 065
  5. CEFAZOLIN [Concomitant]
     Indication: PRODUCT USED FOR UNKNOWN INDICATION
     Dosage: UNK UNK, UNK
     Route: 065
  6. TOTAL PARENTERAL NUTRITION [Concomitant]
     Indication: MALNUTRITION
     Dosage: UNK UNK, UNK
     Route: 065

REACTIONS (9)
  - Respiratory distress [Recovering/Resolving]
  - Pneumonia [Recovering/Resolving]
  - Interstitial lung disease [Recovering/Resolving]
  - Fluid overload [Unknown]
  - Pulmonary oedema [Recovering/Resolving]
  - Enterococcal sepsis [Unknown]
  - Klebsiella infection [Unknown]
  - Blood creatinine increased [Unknown]
  - Antimicrobial susceptibility test resistant [Unknown]
